FAERS Safety Report 4505629-8 (Version None)
Quarter: 2004Q4

REPORT INFORMATION
  Report Type: 
  Country: None (occurrence: None)
  Receive Date: 20041119
  Receipt Date: 20020530
  Transmission Date: 20050328
  Serious: No
  Sender: FDA-Public Use
  Company Number: ES-MERCK-0206ESP00001M

PATIENT
  Sex: Female

DRUGS (1)
  1. PROSCAR [Suspect]
     Indication: PROSTATITIS
     Route: 048
     Dates: start: 20000101, end: 20010101

REACTIONS (4)
  - DRUG EXPOSURE DURING PREGNANCY [None]
  - GESTATIONAL DIABETES [None]
  - HYPOTHYROIDISM [None]
  - TRANSMISSION OF DRUG VIA SEMEN [None]
